FAERS Safety Report 7865529-2 (Version None)
Quarter: 2011Q4

REPORT INFORMATION
  Report Type: 
  Country: None (occurrence: None)
  Receive Date: 20111028
  Receipt Date: 20110113
  Transmission Date: 20120403
  Serious: No
  Sender: FDA-Public Use
  Company Number: US-GLAXOSMITHKLINE-A0905862A

PATIENT
  Age: 82 Year
  Sex: Female

DRUGS (20)
  1. FENTANYL-100 [Concomitant]
  2. ZOCOR [Concomitant]
  3. PAIN MEDICATION [Concomitant]
     Route: 042
  4. TARCEVA [Concomitant]
  5. NEURONTIN [Concomitant]
  6. ACIDOPHILUS [Concomitant]
  7. LEVOTHYROXINE SODIUM [Concomitant]
  8. POTASSIUM [Concomitant]
  9. OMEPRAZOLE [Concomitant]
  10. MELATONIN [Concomitant]
  11. ASCORBIC ACID [Concomitant]
  12. MAGNESIUM [Concomitant]
  13. SENIOR MULTIVITAMIN [Concomitant]
  14. ADVAIR DISKUS 100/50 [Suspect]
     Indication: LUNG NEOPLASM MALIGNANT
     Route: 055
  15. VITAMIN B-12 [Concomitant]
  16. VITAMIN D [Concomitant]
  17. UNKNOWN MEDICATION [Concomitant]
  18. CALCIUM CARBONATE [Concomitant]
  19. RECLAST [Concomitant]
     Route: 042
  20. OXYGEN [Concomitant]

REACTIONS (2)
  - ILL-DEFINED DISORDER [None]
  - PRODUCT QUALITY ISSUE [None]
